FAERS Safety Report 11540602 (Version 1)
Quarter: 2015Q3

REPORT INFORMATION
  Report Type: Spontaneous
  Country: US (occurrence: US)
  Receive Date: 20150923
  Receipt Date: 20150923
  Transmission Date: 20151125
  Serious: No
  Sender: FDA-Public Use
  Company Number: US-BEH-2015050773

PATIENT
  Sex: Female
  Weight: 82 kg

DRUGS (4)
  1. PRIVIGEN [Suspect]
     Active Substance: HUMAN IMMUNOGLOBULIN G
     Indication: FATIGUE
     Dosage: DAILY FOR 5 DAYS
     Route: 042
  2. PRIVIGEN [Suspect]
     Active Substance: HUMAN IMMUNOGLOBULIN G
     Indication: CHORIORETINAL DISORDER
     Dosage: DAILY FOR 5 DAYS
     Route: 042
  3. PRIVIGEN [Suspect]
     Active Substance: HUMAN IMMUNOGLOBULIN G
     Indication: MALAISE
     Dosage: DAILY FOR 5 DAYS
     Route: 042
  4. PRIVIGEN [Suspect]
     Active Substance: HUMAN IMMUNOGLOBULIN G
     Dosage: DAILY FOR 5 DAYS
     Route: 042

REACTIONS (1)
  - Diarrhoea [Recovered/Resolved]
